FAERS Safety Report 9167106 (Version 3)
Quarter: 2013Q2

REPORT INFORMATION
  Report Type: Report from Study
  Country: ES (occurrence: ES)
  Receive Date: 20130318
  Receipt Date: 20130627
  Transmission Date: 20140414
  Serious: Yes (Other)
  Sender: FDA-Public Use
  Company Number: ES-BIOGENIDEC-2013BI021706

PATIENT
  Age: 32 Year
  Sex: Female

DRUGS (7)
  1. TYSABRI [Suspect]
     Indication: MULTIPLE SCLEROSIS
     Route: 042
     Dates: start: 20081215, end: 201109
  2. TYSABRI [Suspect]
     Indication: MULTIPLE SCLEROSIS
     Route: 042
     Dates: start: 20120731, end: 20130109
  3. ANTACIDS [Concomitant]
  4. MULTIVITAMINS [Concomitant]
  5. NSAIDS [Concomitant]
  6. GABAPENTINE [Concomitant]
     Route: 048
  7. OPTOVIT [Concomitant]
     Route: 030

REACTIONS (1)
  - Abortion spontaneous [Recovered/Resolved]
